FAERS Safety Report 6085276-X (Version None)
Quarter: 2009Q1

REPORT INFORMATION
  Report Type: 
  Country: None (occurrence: None)
  Receive Date: 20090218
  Receipt Date: 20090203
  Transmission Date: 20090719
  Serious: Yes (Other)
  Sender: FDA-Public Use
  Company Number: TPH-00140

PATIENT
  Age: 34 Year
  Sex: Female

DRUGS (2)
  1. TRIQUILAR [Suspect]
     Indication: CONTRACEPTION
     Dosage: 1 DF ORAL
     Route: 048
     Dates: start: 20080301, end: 20080401
  2. TRIQUILAR [Suspect]
     Indication: MENSTRUATION IRREGULAR
     Dosage: 1 DF ORAL
     Route: 048
     Dates: start: 20080301, end: 20080401

REACTIONS (2)
  - CEREBRAL INFARCTION [None]
  - HEADACHE [None]
